FAERS Safety Report 8974030 (Version 1)
Quarter: 2012Q4

REPORT INFORMATION
  Report Type: 
  Country: US (occurrence: US)
  Receive Date: 20121218
  Receipt Date: 20121218
  Transmission Date: 20130627
  Serious: No
  Sender: FDA-Public Use
  Company Number: US-BRISTOL-MYERS SQUIBB COMPANY-16850646

PATIENT
  Age: 58 Year
  Sex: Male
  Weight: 99.77 kg

DRUGS (3)
  1. ABILIFY TABS 10 MG [Suspect]
     Indication: BIPOLAR DISORDER
     Dosage: At bedtime.
     Dates: start: 20091103
  2. LAMICTAL [Suspect]
     Dosage: At bedtime.
  3. NORVASC [Concomitant]

REACTIONS (6)
  - Motor dysfunction [Unknown]
  - Hypoaesthesia [Unknown]
  - Nausea [Unknown]
  - Sleep disorder [Unknown]
  - Dyspnoea [Unknown]
  - Treatment noncompliance [Unknown]
